FAERS Safety Report 12866623 (Version 1)
Quarter: 2016Q4

REPORT INFORMATION
  Report Type: Spontaneous
  Country: US (occurrence: US)
  Receive Date: 20161020
  Receipt Date: 20161020
  Transmission Date: 20170207
  Serious: No
  Sender: FDA-Public Use
  Company Number: US-BAUSCH-BL-2016-011319

PATIENT
  Age: 56 Year
  Sex: Female
  Weight: 65.83 kg

DRUGS (3)
  1. WELLBUTRIN XL [Suspect]
     Active Substance: BUPROPION HYDROCHLORIDE
     Indication: DEPRESSION
     Route: 048
     Dates: start: 2003, end: 201603
  2. BUPROPION XL [Suspect]
     Active Substance: BUPROPION
     Indication: DEPRESSION
     Route: 065
     Dates: start: 201603
  3. FISH OIL [Concomitant]
     Active Substance: FISH OIL
     Indication: TYPE 2 DIABETES MELLITUS
     Dosage: 180 EPA/120; 1 IN THE MORNING
     Route: 048
     Dates: start: 2011

REACTIONS (3)
  - Crying [Not Recovered/Not Resolved]
  - Unevaluable event [Not Recovered/Not Resolved]
  - Drug ineffective [Unknown]

NARRATIVE: CASE EVENT DATE: 201603
